FAERS Safety Report 7760363-6 (Version None)
Quarter: 2011Q3

REPORT INFORMATION
  Report Type: 
  Country: None (occurrence: None)
  Receive Date: 20110919
  Receipt Date: 20110908
  Transmission Date: 20111222
  Serious: Yes (Other)
  Sender: FDA-Public Use
  Company Number: PHFR2011GB05289

PATIENT
  Sex: Male

DRUGS (1)
  1. FEMARA [Suspect]
     Indication: BREAST CANCER

REACTIONS (4)
  - DYSPNOEA [None]
  - SYNCOPE [None]
  - COMMUNICATION DISORDER [None]
  - HYPOAESTHESIA [None]
